FAERS Safety Report 18236386 (Version 2)
Quarter: 2020Q4

REPORT INFORMATION
  Report Type: Report from Study
  Country: None (occurrence: US)
  Receive Date: 20200907
  Receipt Date: 20201021
  Transmission Date: 20210113
  Serious: Yes (Other)
  Sender: FDA-Public Use
  Company Number: US-ABBVIE-20K-163-3550036-00

PATIENT
  Age: 60 Year
  Sex: Female
  Weight: 70.37 kg

DRUGS (2)
  1. HUMIRA [Suspect]
     Active Substance: ADALIMUMAB
     Indication: CROHN^S DISEASE
  2. HUMIRA [Suspect]
     Active Substance: ADALIMUMAB
     Indication: CROHN^S DISEASE
     Dosage: CITRATE FREE
     Route: 058
     Dates: start: 20191126

REACTIONS (5)
  - Muscle spasms [Recovering/Resolving]
  - Papule [Not Recovered/Not Resolved]
  - Rash macular [Not Recovered/Not Resolved]
  - Actinic keratosis [Recovering/Resolving]
  - Fibrous histiocytoma [Unknown]

NARRATIVE: CASE EVENT DATE: 20200916
